FAERS Safety Report 8229752-X (Version None)
Quarter: 2012Q1

REPORT INFORMATION
  Report Type: 
  Country: None (occurrence: None)
  Receive Date: 20120322
  Receipt Date: 20120312
  Transmission Date: 20120608
  Serious: Yes (Life-Threatening)
  Sender: FDA-Public Use
  Company Number: JP-ASTRAZENECA-2012SE17227

PATIENT
  Age: 85 Year
  Sex: Female

DRUGS (11)
  1. ASPIRIN [Concomitant]
     Route: 048
     Dates: start: 20080125
  2. DOXAZOSIN MESYLATE [Concomitant]
     Route: 048
     Dates: start: 20101122
  3. AMLODIPINE [Concomitant]
     Route: 048
     Dates: start: 20090514, end: 20110206
  4. CANDESARTAN CILEXETIL [Suspect]
     Route: 048
     Dates: start: 20091119, end: 20100721
  5. AMLODIPINE [Concomitant]
     Route: 048
     Dates: start: 20110207
  6. TENORMIN [Concomitant]
     Route: 048
     Dates: start: 20080125
  7. CANDESARTAN CILEXETIL [Suspect]
     Indication: HYPERTENSION
     Route: 048
     Dates: start: 20090611, end: 20091005
  8. CANDESARTAN CILEXETIL [Suspect]
     Route: 048
     Dates: start: 20100722, end: 20101104
  9. ROCALTROL [Concomitant]
     Route: 048
     Dates: start: 20080125
  10. CANDESARTAN CILEXETIL [Suspect]
     Route: 048
     Dates: start: 20091006, end: 20091118
  11. CANDESARTAN CILEXETIL [Suspect]
     Route: 048
     Dates: start: 20101105

REACTIONS (2)
  - HEPATIC CONGESTION [None]
  - HYPERKALAEMIA [None]
